FAERS Safety Report 12853809 (Version 7)
Quarter: 2020Q2

REPORT INFORMATION
  Report Type: Report from Study
  Country: US (occurrence: US)
  Receive Date: 20161017
  Receipt Date: 20200610
  Transmission Date: 20200713
  Serious: Yes (Hospitalization, Other)
  Sender: FDA-Public Use
  Company Number: US-SA-2016SA185063

PATIENT

DRUGS (6)
  1. FISH OIL [Concomitant]
     Active Substance: FISH OIL
     Dosage: UNK UNK,QD
     Route: 048
     Dates: start: 201506
  2. HYDRODIURIL [Concomitant]
     Active Substance: HYDROCHLOROTHIAZIDE
     Dosage: 12.5 MG,QD
     Route: 048
     Dates: start: 20160824
  3. ACICLOVIR [Concomitant]
     Active Substance: ACYCLOVIR
     Indication: WHITE BLOOD CELL ANALYSIS ABNORMAL
     Dosage: UNK UNK,BID
  4. HYDROCHLOROTHIAZIDE. [Concomitant]
     Active Substance: HYDROCHLOROTHIAZIDE
     Dosage: UNK UNK,QD
     Dates: start: 2015
  5. ZOVIRAX [Concomitant]
     Active Substance: ACYCLOVIR
     Dosage: 400 MG,BID
     Route: 048
  6. ALEMTUZUMAB [Suspect]
     Active Substance: ALEMTUZUMAB
     Indication: MULTIPLE SCLEROSIS
     Dosage: 12 MG,QD
     Route: 041
     Dates: start: 20160711, end: 20160715

REACTIONS (7)
  - Platelet count decreased [Recovered/Resolved]
  - Unevaluable event [Unknown]
  - Lymphocyte count decreased [Unknown]
  - Swollen tongue [Not Recovered/Not Resolved]
  - Tongue discolouration [Unknown]
  - Glossodynia [Not Recovered/Not Resolved]
  - Immune thrombocytopenia [Recovered/Resolved]

NARRATIVE: CASE EVENT DATE: 20161005
